FAERS Safety Report 9909729 (Version 3)
Quarter: 2014Q2

REPORT INFORMATION
  Report Type: Report from Study
  Country: US (occurrence: US)
  Receive Date: 20140219
  Receipt Date: 20140530
  Transmission Date: 20141212
  Serious: Yes (Other)
  Sender: FDA-Public Use
  Company Number: US-JNJFOC-20140210757

PATIENT
  Age: 55 Year
  Sex: Female
  Weight: 106.6 kg

DRUGS (1)
  1. REMICADE [Suspect]
     Indication: RHEUMATOID ARTHRITIS
     Dosage: 3 YEARS AGO
     Route: 042

REACTIONS (2)
  - Lipoma [Recovered/Resolved]
  - Urinary tract infection [Recovered/Resolved]
